FAERS Safety Report 9544257 (Version 2)
Quarter: 2013Q3

REPORT INFORMATION
  Report Type: Spontaneous
  Country: US (occurrence: US)
  Receive Date: 20130923
  Receipt Date: 20130923
  Transmission Date: 20140515
  Serious: No
  Sender: FDA-Public Use
  Company Number: US-ASTRAZENECA-2013SE42553

PATIENT
  Age: 74 Year
  Sex: Male
  Weight: 103.4 kg

DRUGS (9)
  1. ZOLADEX [Suspect]
     Indication: PROSTATE CANCER
     Route: 058
     Dates: start: 200905
  2. ZOLADEX [Suspect]
     Indication: PROSTATE CANCER
     Route: 058
     Dates: start: 20130607, end: 20130607
  3. TENORMIN [Suspect]
     Route: 048
  4. ZESTRIL [Suspect]
     Route: 048
  5. INDOCIN [Concomitant]
     Route: 048
  6. ASPIRIN [Concomitant]
  7. CALCIUM WITH VITAMIN D [Concomitant]
  8. NICOTROL [Concomitant]
  9. SPIRIVA [Concomitant]

REACTIONS (3)
  - Injection site swelling [Recovered/Resolved]
  - Injection site pain [Recovered/Resolved]
  - Injection site erythema [Recovered/Resolved]
